FAERS Safety Report 10025911 (Version 1)
Quarter: 2014Q1

REPORT INFORMATION
  Report Type: Spontaneous
  Country: NL (occurrence: None)
  Receive Date: 20140314
  Receipt Date: 20140314
  Transmission Date: 20141002
  Serious: Yes (Disabling)
  Sender: FDA-Public Use
  Company Number: B0975085A

PATIENT
  Age: 50 Year
  Sex: Male

DRUGS (1)
  1. PAROXETINE HYDROCHLORIDE (FORMULATION UNKNOWN) (PAROXETINE HYDROCHLORIDE) [Suspect]
     Indication: DEPRESSED MOOD
     Route: 048
     Dates: start: 20120314, end: 20120315

REACTIONS (1)
  - Anxiety disorder [None]
